FAERS Safety Report 11069563 (Version 4)
Quarter: 2018Q4

REPORT INFORMATION
  Report Type: Report from Study
  Country: JP (occurrence: JP)
  Receive Date: 20150427
  Receipt Date: 20181221
  Transmission Date: 20190204
  Serious: Yes (Hospitalization, Other)
  Sender: FDA-Public Use
  Company Number: JP-GLAXOSMITHKLINE-JP2015JPN053017

PATIENT
  Age: 39 Year
  Sex: Female
  Weight: 47 kg

DRUGS (29)
  1. FLOLAN [Suspect]
     Active Substance: EPOPROSTENOL SODIUM
     Dosage: UNK
     Route: 042
     Dates: start: 20120929, end: 20121202
  2. ACETAMINOPHEN. [Suspect]
     Active Substance: ACETAMINOPHEN
     Dosage: UNK
     Route: 048
     Dates: start: 20121113, end: 20121113
  3. DOPAMINE [Suspect]
     Active Substance: DOPAMINE\DOPAMINE HYDROCHLORIDE
     Dosage: UNK
     Route: 042
     Dates: start: 20120810, end: 20120922
  4. BONALON [Concomitant]
     Active Substance: ALENDRONATE SODIUM
     Indication: PROPHYLAXIS
     Dosage: UNK
     Dates: start: 20120517
  5. MEDROL [Concomitant]
     Active Substance: METHYLPREDNISOLONE
     Dosage: UNK
     Dates: start: 20120808
  6. FAROM [Concomitant]
     Active Substance: FAROPENEM SODIUM
     Dosage: UNK
     Dates: start: 20120808, end: 20121105
  7. AMBRISENTAN [Suspect]
     Active Substance: AMBRISENTAN
     Indication: PULMONARY ARTERIAL HYPERTENSION
     Dosage: 2.5 MG, QD
     Route: 048
     Dates: start: 20111026, end: 20111027
  8. FLOLAN [Suspect]
     Active Substance: EPOPROSTENOL SODIUM
     Indication: PULMONARY ARTERIAL HYPERTENSION
     Dosage: UNK
     Route: 042
     Dates: end: 201206
  9. DOPAMINE [Suspect]
     Active Substance: DOPAMINE\DOPAMINE HYDROCHLORIDE
     Dosage: UNK
     Dates: start: 20121106, end: 20121122
  10. SLOW-K [Concomitant]
     Active Substance: POTASSIUM CHLORIDE
     Dosage: UNK
  11. FLOMOX [Suspect]
     Active Substance: CEFCAPENE PIVOXIL HYDROCHLORIDE HYDRATE
     Dosage: UNK
     Route: 048
     Dates: start: 20121217, end: 20121220
  12. AMBRISENTAN [Suspect]
     Active Substance: AMBRISENTAN
     Dosage: 2.5 MG, TID
     Route: 048
     Dates: start: 20111101, end: 20120912
  13. AMBRISENTAN [Suspect]
     Active Substance: AMBRISENTAN
     Dosage: 5 MG, BID
     Route: 048
     Dates: start: 20120913, end: 20150625
  14. FLOLAN [Suspect]
     Active Substance: EPOPROSTENOL SODIUM
     Dosage: UNK
     Route: 042
     Dates: start: 20120821, end: 20120928
  15. FLOLAN [Suspect]
     Active Substance: EPOPROSTENOL SODIUM
     Dosage: UNK
     Route: 042
     Dates: start: 20121203
  16. PREDNISOLONE. [Concomitant]
     Active Substance: PREDNISOLONE
     Dosage: UNK
     Dates: end: 20120807
  17. ULSO [Concomitant]
     Dosage: UNK
  18. TAKEPRON [Concomitant]
     Active Substance: LANSOPRAZOLE
     Indication: PROPHYLAXIS
     Dosage: UNK
     Dates: end: 20111027
  19. NEUZYM [Concomitant]
     Active Substance: LYSOZYME HYDROCHLORIDE
     Indication: PROPHYLAXIS
     Dosage: UNK
     Dates: start: 20120808, end: 20121105
  20. ADCIRCA [Concomitant]
     Active Substance: TADALAFIL
     Indication: PULMONARY ARTERIAL HYPERTENSION
     Dosage: UNK
  21. PARIET [Concomitant]
     Active Substance: RABEPRAZOLE SODIUM
     Indication: PROPHYLAXIS
     Dosage: UNK
     Dates: start: 20111028
  22. EPINASTINE. [Concomitant]
     Active Substance: EPINASTINE HYDROCHLORIDE
     Indication: PROPHYLAXIS
     Dosage: UNK
     Dates: start: 20120808, end: 20120828
  23. FLOLAN [Suspect]
     Active Substance: EPOPROSTENOL SODIUM
     Indication: RIGHT VENTRICULAR FAILURE
     Dosage: UNK
     Route: 042
     Dates: start: 20120806, end: 20120820
  24. FUROSEMIDE. [Concomitant]
     Active Substance: FUROSEMIDE
     Dosage: UNK
  25. AMBRISENTAN [Suspect]
     Active Substance: AMBRISENTAN
     Dosage: 2.5 MG, BID
     Route: 048
     Dates: start: 20111028, end: 20111031
  26. MUCODYNE [Suspect]
     Active Substance: CARBOCYSTEINE
     Dosage: UNK
     Route: 048
     Dates: start: 20121217, end: 20121224
  27. EPOPROSTENOL. [Concomitant]
     Active Substance: EPOPROSTENOL
     Indication: PULMONARY ARTERIAL HYPERTENSION
     Dosage: UNK
     Route: 042
     Dates: start: 201206, end: 20120806
  28. ALDACTONE A [Concomitant]
     Active Substance: SPIRONOLACTONE
     Dosage: UNK
  29. ADEMPAS [Concomitant]
     Active Substance: RIOCIGUAT
     Indication: PULMONARY ARTERIAL HYPERTENSION
     Dosage: UNK
     Dates: start: 20150518, end: 20150613

REACTIONS (18)
  - Right ventricular failure [Recovering/Resolving]
  - Right ventricular failure [Recovering/Resolving]
  - Right ventricular failure [Recovering/Resolving]
  - Right ventricular failure [Recovering/Resolving]
  - Right ventricular failure [Recovering/Resolving]
  - Nasal congestion [Recovering/Resolving]
  - Eyelid oedema [Recovering/Resolving]
  - Eyelid oedema [Recovered/Resolved]
  - Otitis media [Recovering/Resolving]
  - Influenza [Recovered/Resolved]
  - Drug hypersensitivity [Recovered/Resolved]
  - Gastrooesophageal reflux disease [Recovering/Resolving]
  - Device related infection [Recovered/Resolved]
  - Hepatic function abnormal [Recovered/Resolved]
  - Anaemia [Recovering/Resolving]
  - Cough [Recovered/Resolved]
  - Device related infection [Recovering/Resolving]
  - Bacteraemia [Recovered/Resolved]

NARRATIVE: CASE EVENT DATE: 20111107
